FAERS Safety Report 10714031 (Version 2)
Quarter: 2015Q1

REPORT INFORMATION
  Report Type: Spontaneous
  Country: DE (occurrence: DE)
  Receive Date: 20150115
  Receipt Date: 20150122
  Transmission Date: 20150721
  Serious: Yes (Hospitalization)
  Sender: FDA-Public Use
  Company Number: DE-BAYER-2015-005765

PATIENT
  Age: 40 Year
  Sex: Female

DRUGS (1)
  1. MIRENA [Suspect]
     Active Substance: LEVONORGESTREL
     Dosage: 20 MCG/24HR, CONT
     Route: 015
     Dates: start: 2002

REACTIONS (5)
  - Medication error [None]
  - Intraductal proliferative breast lesion [Recovered/Resolved]
  - Tubular breast carcinoma [Recovered/Resolved]
  - Product use issue [None]
  - Amenorrhoea [None]

NARRATIVE: CASE EVENT DATE: 2005
